FAERS Safety Report 16424288 (Version 1)
Quarter: 2019Q2

REPORT INFORMATION
  Report Type: Spontaneous
  Country: US (occurrence: US)
  Receive Date: 20190613
  Receipt Date: 20190613
  Transmission Date: 20190711
  Serious: No
  Sender: FDA-Public Use
  Company Number: US-AUROBINDO-AUR-APL-2019-004423

PATIENT

DRUGS (2)
  1. OLANZAPINE 10MG [Suspect]
     Active Substance: OLANZAPINE
     Indication: MANIA
  2. OLANZAPINE 10MG [Suspect]
     Active Substance: OLANZAPINE
     Indication: INSOMNIA
     Dosage: UNK, TAKEN ONCE
     Route: 065
     Dates: start: 20190118

REACTIONS (2)
  - Somnolence [Recovered/Resolved]
  - Vomiting [Recovered/Resolved]

NARRATIVE: CASE EVENT DATE: 20190118
